FAERS Safety Report 13186034 (Version 3)
Quarter: 2017Q2

REPORT INFORMATION
  Report Type: Report from Study
  Country: None (occurrence: US)
  Receive Date: 20170204
  Receipt Date: 20170418
  Transmission Date: 20170830
  Serious: Yes (Other)
  Sender: FDA-Public Use
  Company Number: US-ABBVIE-17K-163-1853447-00

PATIENT
  Sex: Male

DRUGS (1)
  1. HUMIRA [Suspect]
     Active Substance: ADALIMUMAB
     Indication: PSORIASIS
     Route: 058
     Dates: end: 20170102

REACTIONS (6)
  - Post procedural pneumonia [Unknown]
  - Bone erosion [Recovering/Resolving]
  - Diabetic neuropathy [Recovering/Resolving]
  - Psoriasis [Recovering/Resolving]
  - Postoperative thrombosis [Unknown]
  - Fracture [Recovering/Resolving]

NARRATIVE: CASE EVENT DATE: 2016
